FAERS Safety Report 25623738 (Version 5)
Quarter: 2025Q4

REPORT INFORMATION
  Report Type: Report from Study
  Country: CA (occurrence: CA)
  Receive Date: 20250730
  Receipt Date: 20251117
  Transmission Date: 20260118
  Serious: No
  Sender: JOHNSON AND JOHNSON
  Company Number: CA-JNJFOC-20250722230

PATIENT
  Age: 33 Year
  Sex: Male

DRUGS (3)
  1. GUSELKUMAB [Suspect]
     Active Substance: GUSELKUMAB
     Indication: Psoriatic arthropathy
     Route: 058
     Dates: start: 20250429
  2. GUSELKUMAB [Suspect]
     Active Substance: GUSELKUMAB
     Route: 065
  3. GUSELKUMAB [Suspect]
     Active Substance: GUSELKUMAB
     Route: 065

REACTIONS (6)
  - Device deployment issue [Unknown]
  - Underdose [Unknown]
  - Accidental exposure to product [Unknown]
  - Product dose omission issue [Unknown]
  - Product storage error [Unknown]
  - Illness [Recovered/Resolved]

NARRATIVE: CASE EVENT DATE: 20250616
